FAERS Safety Report 12380534 (Version 1)
Quarter: 2016Q2

REPORT INFORMATION
  Report Type: Spontaneous
  Country: US (occurrence: US)
  Receive Date: 20160518
  Receipt Date: 20160518
  Transmission Date: 20160815
  Serious: Yes (Other)
  Sender: FDA-Public Use
  Company Number: PHHY2016US062243

PATIENT
  Sex: Female

DRUGS (1)
  1. GILENYA [Suspect]
     Active Substance: FINGOLIMOD HYDROCHLORIDE
     Indication: RELAPSING-REMITTING MULTIPLE SCLEROSIS
     Route: 048

REACTIONS (6)
  - Diplopia [Recovering/Resolving]
  - Multiple sclerosis relapse [Unknown]
  - Hypoaesthesia [Unknown]
  - Rebound effect [Unknown]
  - Balance disorder [Unknown]
  - Muscular weakness [Unknown]
